FAERS Safety Report 15214553 (Version 1)
Quarter: 2018Q3

REPORT INFORMATION
  Report Type: Spontaneous
  Country: FR (occurrence: FR)
  Receive Date: 20180730
  Receipt Date: 20180730
  Transmission Date: 20181010
  Serious: Yes (Death, Other)
  Sender: FDA-Public Use
  Company Number: FR-SA-2018SA180225

PATIENT
  Age: 91 Year
  Sex: Male
  Weight: 79 kg

DRUGS (15)
  1. KARDEGIC [Suspect]
     Active Substance: ASPIRIN DL-LYSINE
     Dosage: 160 MG
     Route: 048
     Dates: start: 20180115, end: 2018
  2. LOVENOX [Suspect]
     Active Substance: ENOXAPARIN SODIUM
     Indication: PRODUCT USED FOR UNKNOWN INDICATION
     Dosage: UNK
     Route: 058
     Dates: start: 20180113, end: 2018
  3. PREVISCAN [FLUINDIONE] [Suspect]
     Active Substance: FLUINDIONE
     Indication: PRODUCT USED FOR UNKNOWN INDICATION
     Dosage: UNK
     Route: 065
     Dates: start: 2012, end: 20180112
  4. ZOPICLONE [Concomitant]
     Active Substance: ZOPICLONE
     Indication: PRODUCT USED FOR UNKNOWN INDICATION
     Dosage: 3.75 MG, UNK
     Route: 048
     Dates: end: 20180508
  5. KARDEGIC [Suspect]
     Active Substance: ASPIRIN DL-LYSINE
     Indication: PRODUCT USED FOR UNKNOWN INDICATION
     Dosage: 75 MG, UNK
     Route: 048
     Dates: start: 20170726, end: 2017
  6. ELIQUIS [Suspect]
     Active Substance: APIXABAN
     Dosage: 10 MG, UNK
     Route: 048
     Dates: start: 201803, end: 20180508
  7. BISOPROLOL [Concomitant]
     Active Substance: BISOPROLOL
     Indication: PRODUCT USED FOR UNKNOWN INDICATION
     Dosage: UNK
     Route: 048
     Dates: end: 20180508
  8. APIXABAN [Suspect]
     Active Substance: APIXABAN
     Dosage: UNK
  9. SILODOSINE [Concomitant]
     Active Substance: SILODOSIN
     Indication: BENIGN PROSTATIC HYPERPLASIA
     Dosage: 4 MG, UNK
     Route: 048
     Dates: end: 20180508
  10. VALSARTAN. [Concomitant]
     Active Substance: VALSARTAN
     Indication: HYPERTENSION
     Dosage: 160 MG, UNK
     Route: 048
     Dates: end: 20180508
  11. APIXABAN [Suspect]
     Active Substance: APIXABAN
     Indication: PRODUCT USED FOR UNKNOWN INDICATION
     Dosage: UNK
     Route: 065
  12. ELIQUIS [Suspect]
     Active Substance: APIXABAN
     Indication: PRODUCT USED FOR UNKNOWN INDICATION
     Dosage: 5 MG
     Route: 048
     Dates: start: 20180307, end: 201803
  13. DIFFU K [Concomitant]
     Active Substance: POTASSIUM CHLORIDE
     Indication: MINERAL SUPPLEMENTATION
     Dosage: 1200 MG, UNK
     Route: 065
     Dates: end: 20180508
  14. LERCANIDIPINE [Concomitant]
     Active Substance: LERCANIDIPINE
     Indication: HYPERTENSION
     Dosage: 10 MG, UNK
     Route: 048
     Dates: end: 20180508
  15. LASILIX [FUROSEMIDE] [Concomitant]
     Indication: PRODUCT USED FOR UNKNOWN INDICATION
     Dosage: 40 MG, UNK
     Route: 048
     Dates: end: 20180508

REACTIONS (10)
  - Meningorrhagia [Fatal]
  - Altered state of consciousness [Fatal]
  - Device occlusion [Fatal]
  - Enterobacter infection [Fatal]
  - Device related infection [None]
  - Enterococcal infection [Fatal]
  - Endocarditis [Fatal]
  - Infective aneurysm [Fatal]
  - Ruptured cerebral aneurysm [Fatal]
  - Aneurysm ruptured [None]

NARRATIVE: CASE EVENT DATE: 201801
